FAERS Safety Report 13361127 (Version 3)
Quarter: 2017Q2

REPORT INFORMATION
  Report Type: Spontaneous
  Country: PT (occurrence: PT)
  Receive Date: 20170322
  Receipt Date: 20170412
  Transmission Date: 20170830
  Serious: No
  Sender: FDA-Public Use
  Company Number: PT-009507513-1702PRT008089

PATIENT
  Age: 47 Year
  Sex: Male
  Weight: 71 kg

DRUGS (9)
  1. ROCURONIUM BROMIDE. [Suspect]
     Active Substance: ROCURONIUM BROMIDE
     Dosage: 50 MG, ONCE; FOR THE SECOND SURGERY
     Dates: start: 20170214, end: 201702
  2. ROCURONIUM BROMIDE. [Suspect]
     Active Substance: ROCURONIUM BROMIDE
     Indication: NEUROMUSCULAR BLOCKING THERAPY
     Dosage: UNK UNK, ONCE
     Dates: start: 201612
  3. BRIDION [Suspect]
     Active Substance: SUGAMMADEX
     Dosage: 100 MG, ONCE
     Dates: start: 20170214, end: 20170214
  4. ROCURONIUM BROMIDE. [Suspect]
     Active Substance: ROCURONIUM BROMIDE
     Dosage: UNK UNK, ONCE
     Dates: start: 20170214, end: 201702
  5. DEXMEDETOMIDINE. [Suspect]
     Active Substance: DEXMEDETOMIDINE
     Dosage: FOR THE SECOND SURGERY, ONCE
     Route: 040
     Dates: start: 20170214, end: 201702
  6. BRIDION [Suspect]
     Active Substance: SUGAMMADEX
     Indication: NEUROMUSCULAR BLOCKADE REVERSAL
     Dosage: UNK UNK, ONCE
     Dates: start: 20170214, end: 20170214
  7. PROPOFOL. [Suspect]
     Active Substance: PROPOFOL
     Dosage: FOR THE SECOND SURGERY, 134 MG, ONCE
     Dates: start: 20170214, end: 201702
  8. ROCURONIUM BROMIDE. [Suspect]
     Active Substance: ROCURONIUM BROMIDE
     Dosage: 50 MG (0.7 PER KG), ONCE
     Dates: start: 20170214, end: 201702
  9. PROPOFOL. [Suspect]
     Active Substance: PROPOFOL
     Dosage: FOR THE SECOND SURGERY
     Dates: start: 20170214, end: 201702

REACTIONS (6)
  - Drug interaction [Recovered/Resolved]
  - Drug effect incomplete [Recovered/Resolved]
  - Drug ineffective [Recovered/Resolved]
  - Procedural complication [Recovered/Resolved]
  - Oropharyngeal pain [Recovered/Resolved]
  - Hypotension [Recovered/Resolved]

NARRATIVE: CASE EVENT DATE: 201612
